FAERS Safety Report 13338371 (Version 1)
Quarter: 2017Q1

REPORT INFORMATION
  Report Type: Spontaneous
  Country: US (occurrence: US)
  Receive Date: 20170315
  Receipt Date: 20170315
  Transmission Date: 20170428
  Serious: No
  Sender: FDA-Public Use
  Company Number: US-BAYER-2017-049262

PATIENT

DRUGS (2)
  1. CLARITIN-D 24 HOUR [Suspect]
     Active Substance: LORATADINE\PSEUDOEPHEDRINE SULFATE
  2. CLARITIN LIQUI-GELS [Suspect]
     Active Substance: LORATADINE
     Dosage: UNK

REACTIONS (4)
  - Oropharyngeal pain [Unknown]
  - Product use issue [None]
  - Discomfort [Unknown]
  - Sleep disorder [Unknown]

NARRATIVE: CASE EVENT DATE: 201703
